FAERS Safety Report 20081430 (Version 2)
Quarter: 2021Q4

REPORT INFORMATION
  Report Type: Spontaneous
  Country: TH (occurrence: TH)
  Receive Date: 20211117
  Receipt Date: 20211118
  Transmission Date: 20220303
  Serious: Yes (Hospitalization, Other)
  Sender: FDA-Public Use
  Company Number: TH-BoehringerIngelheim-2021-BI-137655

PATIENT
  Age: 67 Year
  Sex: Female

DRUGS (12)
  1. JARDIANCE [Suspect]
     Active Substance: EMPAGLIFLOZIN
     Indication: Type 2 diabetes mellitus
     Dosage: JARDIANCE 10 MG OD
     Dates: start: 20210217
  2. BISOPROLOL [Concomitant]
     Active Substance: BISOPROLOL
     Indication: Product used for unknown indication
     Dosage: BISOPROLOL (5) ? X1
     Dates: start: 202101, end: 20210421
  3. BISOPROLOL [Concomitant]
     Active Substance: BISOPROLOL
     Dosage: BISOPROLOL(5) 1X1
     Dates: start: 20210421
  4. LASIX [Concomitant]
     Active Substance: FUROSEMIDE
     Indication: Product used for unknown indication
     Dosage: FUROSEMIDE 1X2 PC
     Dates: start: 202101, end: 20210113
  5. LASIX [Concomitant]
     Active Substance: FUROSEMIDE
     Dosage: LASIX 1X1 PC
     Dates: start: 20210113, end: 20210421
  6. LASIX [Concomitant]
     Active Substance: FUROSEMIDE
     Dosage: LASIX(40) 1/2X1
     Dates: start: 20210421
  7. ASPIRIN [Concomitant]
     Active Substance: ASPIRIN
     Indication: Product used for unknown indication
     Dosage: ASA(81) 1X1
     Dates: start: 202101
  8. MANIDIPINE [Concomitant]
     Active Substance: MANIDIPINE
     Indication: Product used for unknown indication
     Dates: start: 202101
  9. HYDRALAZINE [Concomitant]
     Active Substance: HYDRALAZINE HYDROCHLORIDE
     Indication: Product used for unknown indication
     Dosage: HYDRALAZINE(25) 1X3 PC
     Dates: start: 202101
  10. ATORVASTATIN [Concomitant]
     Active Substance: ATORVASTATIN
     Indication: Product used for unknown indication
     Dosage: ATORVASTATIN(40) 1X HS
     Dates: start: 202101
  11. MIXTARD [INSULIN;ISOPHANE INSULIN] [Concomitant]
     Indication: Product used for unknown indication
     Dosage: MIXTARD 18-0-14
     Dates: start: 202101, end: 20210113
  12. MIXTARD [INSULIN;ISOPHANE INSULIN] [Concomitant]
     Dosage: MIXTARD 18-0-12
     Dates: start: 20210113

REACTIONS (4)
  - Acute myocardial infarction [Recovered/Resolved]
  - Blood pressure increased [Recovered/Resolved]
  - Blood creatinine increased [Recovered/Resolved]
  - Cardiac failure [Recovered/Resolved]

NARRATIVE: CASE EVENT DATE: 20210705
